FAERS Safety Report 9127243 (Version 1)
Quarter: 2013Q1

REPORT INFORMATION
  Report Type: Spontaneous
  Country: US (occurrence: US)
  Receive Date: 20130228
  Receipt Date: 20130228
  Transmission Date: 20140127
  Serious: No
  Sender: FDA-Public Use
  Company Number: US-MYLANLABS-2012S1017039

PATIENT
  Age: 60 Year
  Sex: Female
  Weight: 160 kg

DRUGS (7)
  1. CHOLESTYRAMINE [Suspect]
     Indication: BLOOD CHOLESTEROL INCREASED
     Route: 048
     Dates: start: 20120803
  2. METFORMIN HYDROCHLORIDE [Suspect]
     Indication: DIABETES MELLITUS
  3. GLYBURIDE [Suspect]
     Indication: DIABETES MELLITUS
  4. HCTZ [Concomitant]
     Indication: HYPERTENSION
  5. ATENOLOL [Concomitant]
     Indication: HYPERTENSION
  6. PLAVIX [Concomitant]
     Indication: BLOOD CHOLESTEROL INCREASED
  7. NORVASC [Concomitant]
     Indication: HYPERTENSION

REACTIONS (2)
  - Drug interaction [Not Recovered/Not Resolved]
  - Blood glucose decreased [Not Recovered/Not Resolved]
